FAERS Safety Report 5483737-5 (Version None)
Quarter: 2007Q4

REPORT INFORMATION
  Report Type: 
  Country: None (occurrence: None)
  Receive Date: 20071009
  Receipt Date: 20071009
  Transmission Date: 20080405
  Serious: Yes (Other)
  Sender: FDA-Public Use
  Company Number: None

PATIENT
  Sex: Male
  Weight: 83.0083 kg

DRUGS (10)
  1. ZENAPAX [Suspect]
     Indication: HUMAN T-CELL LYMPHOTROPIC VIRUS INFECTION
     Dosage: 708MG (8MG/KG) EVERY 3 WEEKS IV
     Route: 042
     Dates: start: 20051123, end: 20070628
  2. LORTADINE [Concomitant]
  3. SOLU-MEDROL [Concomitant]
  4. BENADRYL [Concomitant]
  5. PEPCID [Concomitant]
  6. MEDROL [Concomitant]
  7. KETOCONAZOLE [Concomitant]
  8. KERI LOTION [Concomitant]
  9. AVEENO OATMEAL BATH [Concomitant]
  10. TRIAMICALONE CREAM [Concomitant]

REACTIONS (11)
  - CONDITION AGGRAVATED [None]
  - CONJUNCTIVAL HYPERAEMIA [None]
  - CONJUNCTIVAL OEDEMA [None]
  - DYSPHAGIA [None]
  - NO THERAPEUTIC RESPONSE [None]
  - PERIVASCULAR DERMATITIS [None]
  - PHOTOSENSITIVITY REACTION [None]
  - RASH [None]
  - RASH MACULAR [None]
  - SKIN EXFOLIATION [None]
  - SUNBURN [None]
